FAERS Safety Report 8835531 (Version 1)
Quarter: 2012Q4

REPORT INFORMATION
  Report Type: 
  Country: ES (occurrence: ES)
  Receive Date: 20121011
  Receipt Date: 20121011
  Transmission Date: 20130627
  Serious: Yes (Hospitalization)
  Sender: FDA-Public Use
  Company Number: ES-ELI_LILLY_AND_COMPANY-ES201210002099

PATIENT
  Sex: Female
  Weight: 54 kg

DRUGS (4)
  1. FORSTEO [Suspect]
     Indication: OSTEOPOROSIS
     Dosage: 20 ug, qd
     Route: 058
     Dates: start: 20120105
  2. HIDROSALURETIL [Concomitant]
     Indication: HYPERTENSION
     Dosage: 1 DF, qd
     Route: 048
  3. ASPIRIN [Concomitant]
     Indication: ANTICOAGULANT THERAPY
     Dosage: 1 DF, qd
     Route: 048
  4. PARACETAMOL [Concomitant]
     Indication: BACK PAIN
     Dosage: 1 DF, prn (every 8 hrs if pain)
     Route: 048

REACTIONS (1)
  - Abasia [Not Recovered/Not Resolved]
